FAERS Safety Report 5262792-1 (Version None)
Quarter: 2007Q1

REPORT INFORMATION
  Report Type: 
  Country: None (occurrence: None)
  Receive Date: 20070312
  Receipt Date: 20070228
  Transmission Date: 20070707
  Serious: Yes (Disabling, Other)
  Sender: FDA-Public Use
  Company Number: BE-GLAXOSMITHKLINE-B0459432A

PATIENT
  Age: 48 Year
  Sex: Male
  Weight: 120 kg

DRUGS (6)
  1. ZYBAN [Suspect]
     Dosage: 2TAB PER DAY
     Route: 048
     Dates: start: 20070115, end: 20070212
  2. AMARYL [Concomitant]
     Dosage: 4MG PER DAY
     Route: 048
  3. GLUCOPHAGE [Concomitant]
     Dosage: 850MG TWICE PER DAY
     Route: 048
  4. SIMVASTATIN [Concomitant]
     Indication: BLOOD CHOLESTEROL INCREASED
     Dosage: 100MG PER DAY
     Route: 048
  5. CAPTOPRIL [Concomitant]
     Dosage: 100MG PER DAY
     Route: 048
  6. INDAPAMIDE [Concomitant]
     Dosage: 100MG PER DAY
     Route: 048

REACTIONS (8)
  - DYSAESTHESIA [None]
  - MUSCLE CONTRACTURE [None]
  - MUSCULAR WEAKNESS [None]
  - MYALGIA [None]
  - PAIN IN EXTREMITY [None]
  - PARAESTHESIA [None]
  - PERIARTHRITIS [None]
  - SCIATICA [None]
